FAERS Safety Report 6807086-5 (Version None)
Quarter: 2010Q2

REPORT INFORMATION
  Report Type: 
  Country: None (occurrence: None)
  Receive Date: 20100629
  Receipt Date: 20081120
  Transmission Date: 20101027
  Serious: No
  Sender: FDA-Public Use
  Company Number: US-PFIZER INC-2008053957

PATIENT
  Sex: Male
  Weight: 120.5 kg

DRUGS (6)
  1. ARTHROTEC [Suspect]
     Indication: INFLAMMATION
     Route: 048
     Dates: start: 20080624, end: 20080624
  2. ATENOLOL [Concomitant]
     Indication: HYPERTENSION
  3. RANITIDINE [Concomitant]
     Indication: DYSPEPSIA
  4. SIMVASTATIN [Concomitant]
     Indication: BLOOD CHOLESTEROL INCREASED
  5. VALPROIC ACID [Concomitant]
  6. CLONAZEPAM [Concomitant]

REACTIONS (6)
  - DIARRHOEA [None]
  - DIZZINESS [None]
  - NAUSEA [None]
  - OCULAR HYPERAEMIA [None]
  - PRURITUS [None]
  - RASH [None]
